FAERS Safety Report 9540333 (Version 12)
Quarter: 2014Q3

REPORT INFORMATION
  Report Type: Spontaneous
  Country: CA (occurrence: CA)
  Receive Date: 20130920
  Receipt Date: 20140924
  Transmission Date: 20150326
  Serious: Yes (Hospitalization)
  Sender: FDA-Public Use
  Company Number: CA-GLAXOSMITHKLINE-A1019918A

PATIENT
  Age: 52 Year
  Sex: Female
  Weight: 100 kg

DRUGS (6)
  1. LYRICA [Concomitant]
     Active Substance: PREGABALIN
  2. AREDIA [Concomitant]
     Active Substance: PAMIDRONATE DISODIUM
     Indication: SYSTEMIC LUPUS ERYTHEMATOSUS
  3. PLAQUENIL [Concomitant]
     Active Substance: HYDROXYCHLOROQUINE SULFATE
     Indication: SYSTEMIC LUPUS ERYTHEMATOSUS
     Dosage: 2TAB PER DAY
  4. IMURAN [Concomitant]
     Active Substance: AZATHIOPRINE
     Indication: SYSTEMIC LUPUS ERYTHEMATOSUS
     Dosage: 3TAB PER DAY
  5. PREDNISONE. [Concomitant]
     Active Substance: PREDNISONE
     Indication: SYSTEMIC LUPUS ERYTHEMATOSUS
     Dosage: 10MG UNKNOWN
     Route: 048
  6. BENLYSTA [Suspect]
     Active Substance: BELIMUMAB
     Indication: SYSTEMIC LUPUS ERYTHEMATOSUS
     Dosage: 1000MG SEE DOSAGE TEXT
     Route: 042
     Dates: start: 20130328

REACTIONS (22)
  - Arthritis bacterial [Unknown]
  - Somnolence [Unknown]
  - Hypersomnia [Unknown]
  - Peripheral swelling [Unknown]
  - Adverse event [Unknown]
  - Bronchitis [Unknown]
  - Transfusion [Unknown]
  - Pain in extremity [Not Recovered/Not Resolved]
  - Injury [Unknown]
  - Headache [Recovered/Resolved]
  - Monoplegia [Unknown]
  - Malaise [Unknown]
  - Fall [Unknown]
  - Pleural effusion [Unknown]
  - Neuritis [Unknown]
  - Wound [Unknown]
  - Back pain [Unknown]
  - Psychiatric symptom [Unknown]
  - Depressed mood [Unknown]
  - Fatigue [Unknown]
  - Knee operation [Recovering/Resolving]
  - Anaemia [Recovered/Resolved]

NARRATIVE: CASE EVENT DATE: 20130328
